FAERS Safety Report 11341649 (Version 1)
Quarter: 2015Q3

REPORT INFORMATION
  Report Type: Spontaneous
  Country: US (occurrence: None)
  Receive Date: 20150803
  Receipt Date: 20150803
  Transmission Date: 20151125
  Serious: Yes (Other)
  Sender: FDA-Public Use
  Company Number: None

PATIENT
  Age: 41 Year
  Sex: Female
  Weight: 72.58 kg

DRUGS (2)
  1. ADDERALL [Suspect]
     Active Substance: AMPHETAMINE ASPARTATE\AMPHETAMINE SULFATE\DEXTROAMPHETAMINE SACCHARATE\DEXTROAMPHETAMINE SULFATE
     Indication: ATTENTION DEFICIT/HYPERACTIVITY DISORDER
     Dosage: 1 TAKEN BY MOUTH
     Route: 048
     Dates: start: 20150629, end: 20150801
  2. STANDARD VITAMINS [Concomitant]

REACTIONS (5)
  - Drug ineffective [None]
  - Product substitution issue [None]
  - Chest pain [None]
  - Product quality issue [None]
  - Nervousness [None]

NARRATIVE: CASE EVENT DATE: 20150729
